FAERS Safety Report 8235185-2 (Version None)
Quarter: 2012Q1

REPORT INFORMATION
  Report Type: 
  Country: None (occurrence: None)
  Receive Date: 20120326
  Receipt Date: 20120313
  Transmission Date: 20120608
  Serious: Yes (Hospitalization)
  Sender: FDA-Public Use
  Company Number: US-ROCHE-GNE241168

PATIENT
  Sex: Female

DRUGS (27)
  1. ALBUTEROL [Concomitant]
     Indication: ASTHMA
     Dosage: UNK
  2. NASONEX [Concomitant]
     Indication: HYPERSENSITIVITY
     Dosage: UNK
  3. ALLEGRA [Concomitant]
     Indication: HYPERSENSITIVITY
  4. METHYLPREDNISOLONE [Concomitant]
     Indication: ASTHMA
  5. ADVAIR DISKUS 100/50 [Concomitant]
     Indication: ASTHMA
  6. MULTI-VITAMINS [Concomitant]
     Indication: PREGNANCY
  7. MOTRIN [Concomitant]
     Indication: INCISION SITE PAIN
  8. BENADRYL [Concomitant]
     Indication: HYPERSENSITIVITY
  9. GAMUNEX [Concomitant]
     Indication: BLOOD IMMUNOGLOBULIN G DECREASED
  10. RHINOCORT [Concomitant]
     Indication: HYPERSENSITIVITY
     Dosage: UNK
  11. OMALIZUMAB [Suspect]
     Dosage: 225 MG, Q2W
     Route: 065
     Dates: start: 20071102, end: 20081209
  12. SINGULAIR [Concomitant]
     Indication: ASTHMA
  13. OMALIZUMAB [Suspect]
     Indication: ASTHMA
     Dosage: 225 MG, Q2W
     Route: 065
     Dates: start: 20031028, end: 20070724
  14. ZYFLO [Concomitant]
     Indication: ASTHMA
  15. PULMICORT [Concomitant]
     Indication: ASTHMA
  16. IMMUNE GLOBULIN NOS [Concomitant]
     Indication: IMMUNOGLOBULINS DECREASED
     Dosage: UNK
  17. TYLENOL [Concomitant]
     Indication: SINUS HEADACHE
  18. ALLERGY SHOTS [Concomitant]
     Indication: HYPERSENSITIVITY
  19. PERCOCET [Concomitant]
     Indication: INCISION SITE PAIN
  20. AVELOX [Concomitant]
     Indication: INFECTION
  21. SULFAMETHOXAZOLE AND TRIMETHOPRIM [Concomitant]
     Indication: PROPHYLAXIS
     Dosage: UNK
  22. METHYLPEDNISOLONE SODIUM SUCCINATE [Suspect]
     Indication: ASTHMA
     Dosage: 50 MG, TID
     Route: 030
     Dates: start: 20070908, end: 20070909
  23. XOPENEX [Concomitant]
     Indication: ASTHMA
  24. SUDAFED 12 HOUR [Concomitant]
     Indication: HYPERSENSITIVITY
  25. LEVAQUIN [Concomitant]
     Indication: INFECTION
  26. PRILOSEC [Concomitant]
     Indication: DYSPEPSIA
     Dosage: UNK
  27. ALBUTEROL [Concomitant]
     Indication: ASTHMA
     Route: 030
     Dates: start: 20070908, end: 20070909

REACTIONS (2)
  - FAILED INDUCTION OF LABOUR [None]
  - MATERNAL EXPOSURE DURING PREGNANCY [None]
